FAERS Safety Report 9868480 (Version 2)
Quarter: 2014Q1

REPORT INFORMATION
  Report Type: Spontaneous
  Country: US (occurrence: US)
  Receive Date: 20140204
  Receipt Date: 20140327
  Transmission Date: 20141002
  Serious: Yes (Other)
  Sender: FDA-Public Use
  Company Number: US-PFIZER INC-2014031416

PATIENT
  Age: 76 Year
  Sex: Female

DRUGS (10)
  1. LIPITOR [Suspect]
     Dosage: 20 MG, UNK
  2. CELEBREX [Suspect]
     Dosage: 200 MG, 1X/DAY
     Route: 048
  3. TOVIAZ [Suspect]
     Dosage: 8 MG, 1X/DAY
     Route: 048
  4. CYMBALTA [Concomitant]
     Dosage: 30 MG, UNK
  5. NEURONTIN [Concomitant]
     Dosage: 150 MG, UNK
  6. ATIVAN [Concomitant]
     Dosage: 1 MG, UNK
  7. CARBIDOPA/LEVODOPA [Concomitant]
     Dosage: 15 MG/ 100 MG, UNK
  8. OMEPRAZOLE [Concomitant]
     Dosage: 20 MG, UNK
  9. TEMAZEPAM [Concomitant]
     Dosage: 30 MG, UNK
  10. TOPROL XL [Concomitant]
     Dosage: 25 MG, UNK

REACTIONS (1)
  - Parkinson^s disease [Unknown]
